FAERS Safety Report 6328253-3 (Version None)
Quarter: 2009Q3

REPORT INFORMATION
  Report Type: 
  Country: None (occurrence: None)
  Receive Date: 20090825
  Receipt Date: 20090213
  Transmission Date: 20100115
  Serious: No
  Sender: FDA-Public Use
  Company Number: US-ABBOTT-09P-163-0557783-00

PATIENT
  Sex: Female
  Weight: 108.96 kg

DRUGS (4)
  1. SYNTHROID [Suspect]
     Indication: HYPOTHYROIDISM
     Route: 048
     Dates: start: 20060101
  2. WELLBUTRIN [Concomitant]
     Indication: DEPRESSION
     Route: 048
  3. IRON [Concomitant]
     Indication: ANAEMIA
     Route: 048
  4. FOLIC ACID [Concomitant]
     Indication: DRUG USE FOR UNKNOWN INDICATION
     Route: 048

REACTIONS (1)
  - ALOPECIA [None]
